FAERS Safety Report 15151282 (Version 2)
Quarter: 2019Q1

REPORT INFORMATION
  Report Type: Spontaneous
  Country: BR (occurrence: BR)
  Receive Date: 20180716
  Receipt Date: 20190123
  Transmission Date: 20190417
  Serious: Yes (Hospitalization)
  Sender: FDA-Public Use
  Company Number: BR-ANIPHARMA-2018-BR-000021

PATIENT
  Age: 69 Year
  Sex: Female

DRUGS (6)
  1. UNSPECIFIED SEDATIVE [Suspect]
     Active Substance: UNSPECIFIED INGREDIENT
     Route: 065
  2. RIVOTRIL [Concomitant]
     Active Substance: CLONAZEPAM
     Route: 048
  3. SERTRALINE [Concomitant]
     Active Substance: SERTRALINE HYDROCHLORIDE
     Route: 048
  4. SERETIDE [Concomitant]
     Active Substance: FLUTICASONE PROPIONATE\SALMETEROL XINAFOATE
     Route: 065
  5. BAMIFIX [Concomitant]
     Active Substance: BAMIFYLLINE HYDROCHLORIDE
     Route: 048
  6. ATACAND [Suspect]
     Active Substance: CANDESARTAN CILEXETIL
     Indication: BLOOD PRESSURE MANAGEMENT
     Route: 048

REACTIONS (6)
  - Vitamin D decreased [Recovered/Resolved]
  - Pain [Recovered/Resolved]
  - Dysphagia [Recovered/Resolved]
  - Postmenopausal haemorrhage [Recovered/Resolved]
  - Asthma [Recovered/Resolved]
  - Drug interaction [Recovered/Resolved]

NARRATIVE: CASE EVENT DATE: 20180705
